FAERS Safety Report 14911987 (Version 1)
Quarter: 2018Q2

REPORT INFORMATION
  Report Type: Spontaneous
  Country: US (occurrence: US)
  Receive Date: 20180518
  Receipt Date: 20180518
  Transmission Date: 20180711
  Serious: Yes (Other)
  Sender: FDA-Public Use
  Company Number: US-TEVA-2018-US-891461

PATIENT
  Sex: Female
  Weight: 69.8 kg

DRUGS (9)
  1. METOPROLOL. [Suspect]
     Active Substance: METOPROLOL
     Indication: PRODUCT USED FOR UNKNOWN INDICATION
     Route: 065
  2. ORENITRAM [Suspect]
     Active Substance: TREPROSTINIL
     Indication: PULMONARY ARTERIAL HYPERTENSION
     Dosage: 3.75 MILLIGRAM DAILY;
     Route: 048
     Dates: start: 20180222
  3. ADCIRCA [Concomitant]
     Active Substance: TADALAFIL
  4. ORENITRAM [Suspect]
     Active Substance: TREPROSTINIL
     Route: 048
  5. ORENITRAM [Suspect]
     Active Substance: TREPROSTINIL
     Route: 048
  6. ORENITRAM [Suspect]
     Active Substance: TREPROSTINIL
     Dosage: 7.125 MILLIGRAM DAILY;
     Route: 048
     Dates: start: 20180226
  7. ORENITRAM [Suspect]
     Active Substance: TREPROSTINIL
     Route: 048
  8. ORENITRAM [Suspect]
     Active Substance: TREPROSTINIL
     Route: 048
  9. ORENITRAM [Suspect]
     Active Substance: TREPROSTINIL
     Route: 048

REACTIONS (4)
  - Hypotension [Recovered/Resolved]
  - Oxygen saturation decreased [Unknown]
  - Back pain [Unknown]
  - Fibromyalgia [Unknown]

NARRATIVE: CASE EVENT DATE: 2018
